FAERS Safety Report 6678056-5 (Version None)
Quarter: 2010Q2

REPORT INFORMATION
  Report Type: 
  Country: None (occurrence: None)
  Receive Date: 20100412
  Receipt Date: 20100406
  Transmission Date: 20101027
  Serious: Yes (Death)
  Sender: FDA-Public Use
  Company Number: PHHY2010CA21376

PATIENT
  Sex: Female
  Weight: 50.5 kg

DRUGS (2)
  1. EXELON [Suspect]
     Dosage: PATCH 10
  2. ARICEPT [Concomitant]
     Indication: DEMENTIA ALZHEIMER'S TYPE

REACTIONS (1)
  - DEATH [None]
